FAERS Safety Report 7239883-9 (Version None)
Quarter: 2011Q1

REPORT INFORMATION
  Report Type: 
  Country: None (occurrence: None)
  Receive Date: 20110122
  Receipt Date: 20101222
  Transmission Date: 20110831
  Serious: No
  Sender: FDA-Public Use
  Company Number: US-ALLERGAN-1016677US

PATIENT
  Age: 50 Year
  Sex: Female

DRUGS (2)
  1. EYELINER [Concomitant]
  2. LATISSE [Suspect]
     Indication: GROWTH OF EYELASHES
     Dosage: UNK
     Route: 061
     Dates: start: 20101123

REACTIONS (3)
  - BLEPHARITIS [None]
  - EYELIDS PRURITUS [None]
  - EYELID OEDEMA [None]
